FAERS Safety Report 10133751 (Version 2)
Quarter: 2014Q2

REPORT INFORMATION
  Report Type: Report from Study
  Country: VE (occurrence: VE)
  Receive Date: 20140428
  Receipt Date: 20140512
  Transmission Date: 20141212
  Serious: Yes (Death)
  Sender: FDA-Public Use
  Company Number: VE-ABBVIE-14K-178-1230128-00

PATIENT
  Age: 72 Year
  Sex: Male

DRUGS (2)
  1. ZEMPLAR [Suspect]
     Indication: RENAL FAILURE
     Dosage: DOSE: 10 MICROGRAM
     Route: 042
     Dates: start: 201004, end: 20140218
  2. ZEMPLAR [Suspect]
     Indication: NEPHROPATHY

REACTIONS (1)
  - Road traffic accident [Fatal]
